FAERS Safety Report 18886817 (Version 1)
Quarter: 2021Q1

REPORT INFORMATION
  Report Type: Report from Study
  Country: BE (occurrence: BE)
  Receive Date: 20210212
  Receipt Date: 20210212
  Transmission Date: 20210420
  Serious: Yes (Hospitalization)
  Sender: FDA-Public Use
  Company Number: BE-TAKEDA-2021TUS007281

PATIENT
  Sex: Female

DRUGS (5)
  1. PANTOMED [PANTOPRAZOLE SODIUM SESQUIHYDRATE] [Concomitant]
     Active Substance: PANTOPRAZOLE SODIUM
     Dosage: UNK
  2. NOBITEN [NEBIVOLOL] [Concomitant]
     Dosage: UNK
  3. AMLOR [Concomitant]
     Active Substance: AMLODIPINE BESYLATE
     Dosage: UNK
  4. VEDOLIZUMAB [Suspect]
     Active Substance: VEDOLIZUMAB
     Indication: INFLAMMATORY BOWEL DISEASE
     Dosage: UNK
     Route: 042
     Dates: start: 20160113
  5. MOXONIDINE [Concomitant]
     Active Substance: MOXONIDINE
     Dosage: UNK

REACTIONS (1)
  - Renal transplant [Recovered/Resolved]

NARRATIVE: CASE EVENT DATE: 20201009
